FAERS Safety Report 5785017-7 (Version None)
Quarter: 2008Q2

REPORT INFORMATION
  Report Type: 
  Country: None (occurrence: None)
  Receive Date: 20080605
  Receipt Date: 20080418
  Transmission Date: 20081010
  Serious: No
  Sender: FDA-Public Use
  Company Number: A0723562A

PATIENT
  Age: 37 Year
  Sex: Female
  Weight: 95 kg

DRUGS (1)
  1. ALLI [Suspect]
     Dates: start: 20080407

REACTIONS (2)
  - CHANGE OF BOWEL HABIT [None]
  - CONSTIPATION [None]
